FAERS Safety Report 9652433 (Version 1)
Quarter: 2013Q4

REPORT INFORMATION
  Report Type: Spontaneous
  Country: US (occurrence: None)
  Receive Date: 20131028
  Receipt Date: 20131028
  Transmission Date: 20140711
  Serious: No
  Sender: FDA-Public Use
  Company Number: None

PATIENT
  Age: 51 Year
  Sex: Male
  Weight: 67.13 kg

DRUGS (9)
  1. TRAMADOL [Suspect]
     Indication: PAIN
     Dosage: 1 PILL THREE TIMES DAILY TAKEN BY MOUTH
     Route: 048
     Dates: start: 20120606, end: 20120606
  2. TRAMADOL [Suspect]
     Indication: RENAL SURGERY
     Dosage: 1 PILL THREE TIMES DAILY TAKEN BY MOUTH
     Route: 048
     Dates: start: 20120606, end: 20120606
  3. PAXIL [Concomitant]
  4. KLONOPIN [Concomitant]
  5. ACIPHEX [Concomitant]
  6. ZEGERLD [Concomitant]
  7. LEVOTHYROXINE [Concomitant]
  8. VITAMIN D [Concomitant]
  9. THORNE RESEARCH BASIC NUTRIENTS III (WITHOUT COPPER AND IRON) [Concomitant]

REACTIONS (5)
  - Torticollis [None]
  - Condition aggravated [None]
  - Abdominal distension [None]
  - Abdominal pain upper [None]
  - Insomnia [None]
